FAERS Safety Report 25831845 (Version 1)
Quarter: 2025Q3

REPORT INFORMATION
  Report Type: Spontaneous
  Country: US (occurrence: None)
  Receive Date: 20250921
  Receipt Date: 20250921
  Transmission Date: 20251021
  Serious: Yes (Death)
  Sender: FDA-CTU
  Company Number: None

PATIENT
  Age: 58 Year
  Sex: Male
  Weight: 58.5 kg

DRUGS (4)
  1. FABHALTA [Suspect]
     Active Substance: IPTACOPAN HYDROCHLORIDE
     Indication: C3 glomerulopathy
     Dosage: 200 MG TWICE A DAY ORAL ?
     Route: 048
     Dates: start: 20250624, end: 20250902
  2. MENVEO [Suspect]
     Active Substance: MENINGOCOCCAL (GROUPS A, C, Y, W) CONJUGATE VACCINE
  3. BEXSERO [Suspect]
     Active Substance: MENINGOCOCCAL GROUP B VACCINE
  4. PREVNAR 13 [Suspect]
     Active Substance: STREPTOCOCCUS PNEUMONIAE TYPE 1 CAPSULAR POLYSACCHARIDE DIPHTHERIA CRM197 PROTEIN CONJUGATE ANTIGEN\

REACTIONS (13)
  - Malaise [None]
  - Dyspnoea [None]
  - Respiratory distress [None]
  - Livedo reticularis [None]
  - Agitation [None]
  - Disseminated intravascular coagulation [None]
  - Platelet count decreased [None]
  - Acute kidney injury [None]
  - Shock [None]
  - Troponin increased [None]
  - Ejection fraction decreased [None]
  - Meningococcal infection [None]
  - General physical health deterioration [None]

NARRATIVE: CASE EVENT DATE: 20250902
